FAERS Safety Report 10203298 (Version 1)
Quarter: 2014Q2

REPORT INFORMATION
  Report Type: Spontaneous
  Country: VE (occurrence: VE)
  Receive Date: 20140529
  Receipt Date: 20140529
  Transmission Date: 20141212
  Serious: Yes (Other)
  Sender: FDA-Public Use
  Company Number: VE-AMGEN INC.-VENSP2014039510

PATIENT
  Sex: Female

DRUGS (1)
  1. ENBREL [Suspect]
     Indication: PRODUCT USED FOR UNKNOWN INDICATION
     Dosage: 25 MG, UNK
     Route: 065

REACTIONS (4)
  - Eye disorder [Not Recovered/Not Resolved]
  - Tooth disorder [Not Recovered/Not Resolved]
  - Depression [Not Recovered/Not Resolved]
  - Tinea pedis [Not Recovered/Not Resolved]
